FAERS Safety Report 18204959 (Version 7)
Quarter: 2021Q3

REPORT INFORMATION
  Report Type: Spontaneous
  Country: US (occurrence: US)
  Receive Date: 20200828
  Receipt Date: 20210924
  Transmission Date: 20211014
  Serious: No
  Sender: FDA-Public Use
  Company Number: US-SA-2020SA215696

PATIENT
  Age: 60 Year
  Sex: Male

DRUGS (2)
  1. CABLIVI [Suspect]
     Active Substance: CAPLACIZUMAB-YHDP
     Indication: THROMBOTIC MICROANGIOPATHY
     Dosage: 11 MG
     Route: 058
     Dates: start: 20200721
  2. CABLIVI [Suspect]
     Active Substance: CAPLACIZUMAB-YHDP
     Dosage: 11 MG
     Route: 058
     Dates: start: 20200822

REACTIONS (8)
  - Injection site bruising [Unknown]
  - Injection site haemorrhage [Unknown]
  - Feeling hot [Recovered/Resolved]
  - Feeling abnormal [Unknown]
  - Skin haemorrhage [Unknown]
  - Platelet count abnormal [Unknown]
  - Epistaxis [Unknown]
  - ADAMTS13 activity decreased [Unknown]

NARRATIVE: CASE EVENT DATE: 202009
